FAERS Safety Report 8372396-X (Version None)
Quarter: 2012Q2

REPORT INFORMATION
  Report Type: 
  Country: None (occurrence: None)
  Receive Date: 20120521
  Receipt Date: 20120509
  Transmission Date: 20120825
  Serious: Yes (Hospitalization, Other)
  Sender: FDA-Public Use
  Company Number: FR-VERTEX PHARMACEUTICALS INC.-000000000000000322

PATIENT
  Sex: Female
  Weight: 66 kg

DRUGS (17)
  1. PEGASYS [Concomitant]
     Indication: HEPATITIS C
     Route: 058
     Dates: start: 20110926, end: 20111220
  2. NOROXIN [Concomitant]
     Dates: start: 20111110, end: 20111114
  3. OFLOXACIN [Concomitant]
     Indication: URINARY TRACT INFECTION
     Dates: start: 20111011, end: 20111016
  4. CEFTRIAXONE SODIUM [Concomitant]
     Dates: start: 20120117, end: 20120124
  5. FOLIC ACID [Concomitant]
     Indication: ANAEMIA
     Dates: start: 20111220
  6. INCIVO (TELAPREVIR) [Suspect]
     Indication: HEPATITIS C
     Dosage: DOSAGE FORM: TABLET
     Route: 048
     Dates: start: 20110926, end: 20111220
  7. IRBESARTAN [Concomitant]
     Indication: HYPERTENSION
     Dosage: 150MG/12.5G
     Dates: start: 20110101
  8. ACETAMINOPHEN [Concomitant]
  9. COPEGUS [Concomitant]
     Indication: HEPATITIS C
     Dosage: DOSAGE FORM: UNSPECIFIED
     Route: 048
     Dates: start: 20110926, end: 20111010
  10. BISOPROLOL FUMARATE [Concomitant]
     Indication: HYPERTENSION
     Dates: start: 20080101
  11. PEGASYS [Concomitant]
     Route: 058
     Dates: start: 20111227, end: 20120301
  12. NOROXIN [Concomitant]
     Indication: URINARY TRACT INFECTION
     Dates: start: 20111107, end: 20111110
  13. LANSOPRAZOLE [Concomitant]
     Indication: BURN OESOPHAGEAL
     Dates: start: 20111124
  14. XANAX [Concomitant]
     Indication: SLEEP DISORDER
     Dates: start: 20111017
  15. COPEGUS [Concomitant]
     Dosage: DOSAGE FORM: UNSPECIFIED
     Route: 048
     Dates: start: 20111011, end: 20111219
  16. COPEGUS [Concomitant]
     Dosage: DOSAGE FORM: UNSPECIFIED
     Route: 048
     Dates: start: 20111219, end: 20120301
  17. CEFTRIAXONE SODIUM [Concomitant]
     Indication: URINARY TRACT INFECTION
     Dates: start: 20111130, end: 20111206

REACTIONS (6)
  - PANCYTOPENIA [None]
  - ANAEMIA [None]
  - DYSPNOEA [None]
  - ASTHENIA [None]
  - VIRAL LOAD INCREASED [None]
  - VISUAL IMPAIRMENT [None]
